FAERS Safety Report 9533315 (Version 1)
Quarter: 2013Q2

REPORT INFORMATION
  Report Type: Spontaneous
  Country: US (occurrence: None)
  Receive Date: 20130403
  Receipt Date: 20130403
  Transmission Date: 20140414
  Serious: Yes (Other)
  Sender: FDA-Public Use
  Company Number: US-2012-11518

PATIENT
  Age: 2 Year
  Sex: Male

DRUGS (9)
  1. BUSULFAN [Suspect]
     Indication: BONE MARROW CONDITIONING REGIMEN
  2. CYCLPPHOSPHAMIDE(CYCLOPHOSPHAMIDE) [Concomitant]
  3. ELTOPOSIDE(ETOPOSIDE) [Concomitant]
  4. ORTHOCLONE OKT 3(MOROMONAB-CD3) [Concomitant]
  5. FLUCONAZOLE(FLUCONAZOLE) [Concomitant]
  6. ACYCLOVIR(ACICLOVER) [Concomitant]
  7. CIPROFLOXACIN(CIPROFLOXACIN HYDROCHLORIDE) [Concomitant]
  8. TRIMETOPRIM +SULFAMETOXAZOL(SULFAMETHOXAZOLE, TRIMETHOPRIM) [Concomitant]
  9. IMMUNOGLOBULIN(IMMUNOGLOBULIN) [Concomitant]

REACTIONS (1)
  - Cytomegalovirus infection [None]
